FAERS Safety Report 5003704-5 (Version None)
Quarter: 2006Q2

REPORT INFORMATION
  Report Type: 
  Country: None (occurrence: None)
  Receive Date: 20060516
  Receipt Date: 20050930
  Transmission Date: 20061013
  Serious: Yes (Hospitalization, Other)
  Sender: FDA-Public Use
  Company Number: US-MERCK-0510USA01456

PATIENT
  Age: 68 Year
  Sex: Female
  Weight: 89 kg

DRUGS (1)
  1. VIOXX [Suspect]
     Indication: POLYCHONDRITIS
     Route: 048
     Dates: start: 19990501, end: 20040901

REACTIONS (31)
  - AORTIC VALVE INCOMPETENCE [None]
  - ARRHYTHMIA [None]
  - ARTERIOSCLEROSIS CORONARY ARTERY [None]
  - BLOOD IMMUNOGLOBULIN G DECREASED [None]
  - BRONCHIECTASIS [None]
  - BRONCHITIS [None]
  - BRONCHOPNEUMONIA [None]
  - CARDIAC DISORDER [None]
  - CARDIAC FAILURE CONGESTIVE [None]
  - CARDIOMEGALY [None]
  - CEREBROVASCULAR ACCIDENT [None]
  - COMPLEX REGIONAL PAIN SYNDROME [None]
  - CORONARY ARTERY OCCLUSION [None]
  - CORONARY ARTERY STENOSIS [None]
  - DYSPNOEA [None]
  - FATIGUE [None]
  - HEPATOCELLULAR DAMAGE [None]
  - IMMUNOGLOBULINS ABNORMAL [None]
  - LUNG DISORDER [None]
  - MALAISE [None]
  - MITRAL VALVE INCOMPETENCE [None]
  - MULTI-ORGAN DISORDER [None]
  - MYOCARDIAL INFARCTION [None]
  - OBESITY [None]
  - POLYCHONDRITIS [None]
  - PULMONARY EMBOLISM [None]
  - RENAL DISORDER [None]
  - SELECTIVE IGG SUBCLASS DEFICIENCY [None]
  - TRICUSPID VALVE INCOMPETENCE [None]
  - VENTRICULAR DYSFUNCTION [None]
  - VISUAL ACUITY REDUCED [None]
